FAERS Safety Report 7158083-4 (Version None)
Quarter: 2010Q4

REPORT INFORMATION
  Report Type: 
  Country: None (occurrence: None)
  Receive Date: 20101214
  Receipt Date: 20100315
  Transmission Date: 20110411
  Serious: No
  Sender: FDA-Public Use
  Company Number: US-ASTRAZENECA-2010SE17820

PATIENT
  Age: 25915 Day
  Sex: Female
  Weight: 91.6 kg

DRUGS (3)
  1. CRESTOR [Suspect]
     Indication: BLOOD CHOLESTEROL INCREASED
     Route: 048
     Dates: start: 20090301
  2. NIASPAN [Suspect]
     Indication: BLOOD CHOLESTEROL INCREASED
     Route: 065
     Dates: start: 20100308
  3. MONTELUKAST [Concomitant]
     Indication: ASTHMA

REACTIONS (3)
  - DYSPNOEA [None]
  - HEADACHE [None]
  - MUSCLE SPASMS [None]
